FAERS Safety Report 19984544 (Version 2)
Quarter: 2021Q4

REPORT INFORMATION
  Report Type: Spontaneous
  Country: JP (occurrence: JP)
  Receive Date: 20211021
  Receipt Date: 20211211
  Transmission Date: 20220303
  Serious: Yes (Hospitalization, Other)
  Sender: FDA-Public Use
  Company Number: JP-OTSUKA-2021_035703

PATIENT
  Age: 9 Decade
  Sex: Male

DRUGS (2)
  1. ICLUSIG [Suspect]
     Active Substance: PONATINIB
     Indication: Philadelphia positive acute lymphocytic leukaemia
     Dosage: UNK
     Route: 065
  2. PREDNISOLONE [Concomitant]
     Active Substance: PREDNISOLONE
     Indication: Product used for unknown indication
     Dosage: 1 MILLIGRAM/KILOGRAM, QD
     Route: 065

REACTIONS (3)
  - Parkinson^s disease [Unknown]
  - Cerebral infarction [Unknown]
  - Supraventricular tachycardia [Unknown]
